FAERS Safety Report 9507270 (Version 1)
Quarter: 2013Q1

REPORT INFORMATION
  Report Type: Spontaneous
  Country: US (occurrence: None)
  Receive Date: 20130305
  Receipt Date: 20130305
  Transmission Date: 20140127
  Serious: Yes (Hospitalization)
  Sender: FDA-Public Use
  Company Number: 163-21880-06120487

PATIENT
  Age: 51 Year
  Sex: Female

DRUGS (9)
  1. REVLIMID [Suspect]
     Indication: PLASMA CELL MYELOMA
     Route: 048
     Dates: start: 20061127, end: 200612
  2. VELCADE (BORTEZOMIB) [Concomitant]
  3. ALOXI (PALONOSETRON HYDROCHLORIDE) [Concomitant]
  4. GLUCOSAMINE CHOND (GLUCOSAMINE W/CHONDROITIN SULFATE) [Concomitant]
  5. VITAMINS [Concomitant]
  6. NEURONTIN (GABAPENTIN) [Concomitant]
  7. PERCOCET (OXYCOCET) [Concomitant]
  8. TOPROL XL (METOPROLOL SUCCINATE) (100 MILLIGRAM) (METOPROLOL SUCCINATE) [Concomitant]
  9. ZOMETA (ZOLEDRONIC ACID) [Concomitant]

REACTIONS (5)
  - Pneumonia [None]
  - Dyspnoea [None]
  - Pyrexia [None]
  - Blood pressure increased [None]
  - No therapeutic response [None]
